FAERS Safety Report 17885993 (Version 2)
Quarter: 2020Q3

REPORT INFORMATION
  Report Type: Spontaneous
  Country: US (occurrence: US)
  Receive Date: 20200611
  Receipt Date: 20200722
  Transmission Date: 20201103
  Serious: No
  Sender: FDA-Public Use
  Company Number: US-ELI_LILLY_AND_COMPANY-US202005009140

PATIENT
  Sex: Female

DRUGS (4)
  1. TRULICITY [Suspect]
     Active Substance: DULAGLUTIDE
     Indication: PRODUCT USED FOR UNKNOWN INDICATION
     Dosage: 1.5 MG, UNKNOWN
     Route: 065
     Dates: start: 202004
  2. BASAGLAR [Suspect]
     Active Substance: INSULIN GLARGINE
     Dosage: 38 INTERNATIONAL UNIT, DAILY
     Route: 065
     Dates: start: 202004
  3. BASAGLAR [Suspect]
     Active Substance: INSULIN GLARGINE
     Indication: PRODUCT USED FOR UNKNOWN INDICATION
     Dosage: 42 INTERNATIONAL UNIT, DAILY
     Route: 065
     Dates: start: 202004
  4. TYLENOL [Concomitant]
     Active Substance: ACETAMINOPHEN
     Route: 065

REACTIONS (8)
  - Pain [Unknown]
  - Blood glucose increased [Unknown]
  - Drug ineffective [Unknown]
  - Neck pain [Unknown]
  - Stress [Unknown]
  - Pain in extremity [Unknown]
  - Arthralgia [Unknown]
  - Headache [Unknown]
